FAERS Safety Report 15398391 (Version 10)
Quarter: 2019Q3

REPORT INFORMATION
  Report Type: Spontaneous
  Country: JP (occurrence: JP)
  Receive Date: 20180918
  Receipt Date: 20190816
  Transmission Date: 20191004
  Serious: Yes (Other)
  Sender: FDA-Public Use
  Company Number: JP-TEVA-2018-JP-954827

PATIENT
  Age: 79 Year
  Sex: Female

DRUGS (5)
  1. BENDAMUSTINE HYDROCHLORIDE. [Suspect]
     Active Substance: BENDAMUSTINE HYDROCHLORIDE
     Dosage: (4TH CYCLE)
     Route: 042
  2. BENDAMUSTINE HYDROCHLORIDE. [Suspect]
     Active Substance: BENDAMUSTINE HYDROCHLORIDE
     Indication: B-CELL LYMPHOMA
     Dosage: 90 MG/M2/DAY, CYCLIC
     Route: 042
     Dates: start: 20180109, end: 20180110
  3. RITUXIMAB. [Suspect]
     Active Substance: RITUXIMAB
     Dosage: (4TH CYCLE)
     Route: 041
  4. RITUXIMAB. [Suspect]
     Active Substance: RITUXIMAB
     Indication: B-CELL LYMPHOMA
     Dosage: 375 MG/M2/DAY, CYCLIC
     Route: 041
     Dates: start: 20180108
  5. BENDAMUSTINE HYDROCHLORIDE. [Suspect]
     Active Substance: BENDAMUSTINE HYDROCHLORIDE
     Dosage: 90 MG/M2/DAY, CYCLIC
     Route: 042
     Dates: start: 20180724, end: 20180725

REACTIONS (9)
  - Pharyngeal neoplasm [Unknown]
  - Cytomegalovirus infection [Unknown]
  - Infection [Unknown]
  - Prescribed underdose [Unknown]
  - Lymphocyte count decreased [Not Recovered/Not Resolved]
  - Diffuse large B-cell lymphoma [Recovered/Resolved]
  - Peritoneal neoplasm [Unknown]
  - Cell-mediated immune deficiency [Unknown]
  - Epstein-Barr virus test positive [Unknown]

NARRATIVE: CASE EVENT DATE: 20180109
